FAERS Safety Report 12928036 (Version 1)
Quarter: 2016Q4

REPORT INFORMATION
  Report Type: Spontaneous
  Country: US (occurrence: US)
  Receive Date: 20161110
  Receipt Date: 20161110
  Transmission Date: 20170207
  Serious: Yes (Disabling)
  Sender: FDA-Public Use
  Company Number: None

PATIENT
  Age: 56 Year
  Sex: Male
  Weight: 107.96 kg

DRUGS (9)
  1. LISINOPRIL. [Concomitant]
     Active Substance: LISINOPRIL
  2. NEOMYCIN AND POLYMYXIN B SULFATE AND HYDROCORTISONE OPTIC SOLUTION [Suspect]
     Active Substance: HYDROCORTISONE\NEOMYCIN SULFATE\POLYMYXIN B SULFATE
     Indication: INFECTION
     Dosage: DROPS IN EAR
     Dates: start: 201504
  3. HCTZ [Concomitant]
     Active Substance: HYDROCHLOROTHIAZIDE
  4. ASPIRIN. [Concomitant]
     Active Substance: ASPIRIN
  5. METOPROLOL TART [Concomitant]
     Active Substance: METOPROLOL TARTRATE
  6. VERAPAMIL [Concomitant]
     Active Substance: VERAPAMIL HYDROCHLORIDE
  7. NEOMYCIN AND POLYMYXIN B SULFATE AND HYDROCORTISONE OPTIC SOLUTION [Suspect]
     Active Substance: HYDROCORTISONE\NEOMYCIN SULFATE\POLYMYXIN B SULFATE
     Indication: DEAFNESS
     Dosage: DROPS IN EAR
     Dates: start: 201504
  8. NEOMYCIN AND POLYMYXIN B SULFATE AND HYDROCORTISONE OPTIC SOLUTION [Suspect]
     Active Substance: HYDROCORTISONE\NEOMYCIN SULFATE\POLYMYXIN B SULFATE
     Indication: TINNITUS
     Dosage: DROPS IN EAR
     Dates: start: 201504
  9. ONE-A-DAY VITAMIN [Concomitant]

REACTIONS (1)
  - Deafness unilateral [None]

NARRATIVE: CASE EVENT DATE: 201604
